FAERS Safety Report 25914155 (Version 1)
Quarter: 2025Q4

REPORT INFORMATION
  Report Type: Spontaneous
  Country: US (occurrence: US)
  Receive Date: 20251013
  Receipt Date: 20251013
  Transmission Date: 20260118
  Serious: No
  Sender: SANOFI AVENTIS
  Company Number: US-SA-2025SA297440

PATIENT
  Age: 9 Year
  Sex: Male

DRUGS (2)
  1. ALPROLIX [Suspect]
     Active Substance: EFTRENONACOG ALFA
     Indication: Factor IX deficiency
     Dosage: 2000 U, Q10D
     Route: 042
     Dates: start: 201707
  2. ALPROLIX [Suspect]
     Active Substance: EFTRENONACOG ALFA
     Indication: Factor IX deficiency
     Dosage: 2000 U, Q10D
     Route: 042
     Dates: start: 201707

REACTIONS (1)
  - Mouth haemorrhage [Unknown]

NARRATIVE: CASE EVENT DATE: 20250101
